FAERS Safety Report 22086324 (Version 1)
Quarter: 2023Q1

REPORT INFORMATION
  Report Type: Spontaneous
  Country: US (occurrence: US)
  Receive Date: 20230310
  Receipt Date: 20230310
  Transmission Date: 20230418
  Serious: No
  Sender: FDA-Public Use
  Company Number: US-009507513-2302USA005146

PATIENT
  Age: 57 Year
  Sex: Male

DRUGS (4)
  1. PEMBROLIZUMAB [Suspect]
     Active Substance: PEMBROLIZUMAB
     Indication: Lung adenocarcinoma stage IV
  2. PEMBROLIZUMAB [Suspect]
     Active Substance: PEMBROLIZUMAB
     Indication: Adenocarcinoma metastatic
  3. ENTRECTINIB [Concomitant]
     Active Substance: ENTRECTINIB
     Indication: Lung adenocarcinoma stage IV
  4. ENTRECTINIB [Concomitant]
     Active Substance: ENTRECTINIB
     Indication: Adenocarcinoma metastatic

REACTIONS (1)
  - Product use in unapproved indication [Unknown]
